FAERS Safety Report 4874151-1 (Version None)
Quarter: 2006Q1

REPORT INFORMATION
  Report Type: 
  Country: None (occurrence: None)
  Receive Date: 20060106
  Receipt Date: 20050719
  Transmission Date: 20060701
  Serious: Yes (Disabling)
  Sender: FDA-Public Use
  Company Number: JP-GLAXOSMITHKLINE-B0388288A

PATIENT
  Age: 78 Year
  Sex: Female

DRUGS (6)
  1. VALTREX [Suspect]
     Indication: HERPES ZOSTER
     Dosage: 1000MG PER DAY
     Route: 048
     Dates: start: 20050715, end: 20050717
  2. NORVASC [Concomitant]
     Indication: HYPERTENSION
     Dosage: 5MG PER DAY
     Route: 048
     Dates: start: 20000127
  3. CALTAN [Concomitant]
     Indication: BLOOD PHOSPHORUS INCREASED
     Dosage: 3000MG PER DAY
     Route: 048
     Dates: start: 20000127
  4. RENIVACE [Concomitant]
     Indication: HYPERTENSION
     Dosage: 10MG PER DAY
     Route: 048
     Dates: start: 20000127
  5. ASPIRIN [Concomitant]
     Dosage: 100MG PER DAY
     Route: 048
     Dates: start: 20030612
  6. PURSENNID [Concomitant]
     Indication: CONSTIPATION
     Dosage: 36MG PER DAY
     Route: 048
     Dates: start: 20000215

REACTIONS (4)
  - ABASIA [None]
  - EATING DISORDER [None]
  - NERVOUS SYSTEM DISORDER [None]
  - SPEECH DISORDER [None]
